FAERS Safety Report 10330090 (Version 2)
Quarter: 2014Q3

REPORT INFORMATION
  Report Type: Spontaneous
  Country: GB (occurrence: GB)
  Receive Date: 20140721
  Receipt Date: 20140721
  Transmission Date: 20150326
  Serious: Yes (Disabling, Other)
  Sender: FDA-Public Use
  Company Number: ALCN2006GB002449

PATIENT
  Sex: Male

DRUGS (2)
  1. TIMOLOL [Suspect]
     Active Substance: TIMOLOL
     Indication: HERPES ZOSTER
     Dosage: 1 DF, BID
     Route: 047
     Dates: start: 20050501, end: 20051101
  2. PREDNISOLONE. [Suspect]
     Active Substance: PREDNISOLONE
     Dosage: 1 DF, QID
     Dates: start: 20050601, end: 20051101

REACTIONS (3)
  - Blood phosphorus increased [Not Recovered/Not Resolved]
  - Blindness [Not Recovered/Not Resolved]
  - Corneal deposits [Not Recovered/Not Resolved]

NARRATIVE: CASE EVENT DATE: 20050601
